FAERS Safety Report 4658631-X (Version None)
Quarter: 2005Q2

REPORT INFORMATION
  Report Type: 
  Country: None (occurrence: None)
  Receive Date: 20050511
  Receipt Date: 20050428
  Transmission Date: 20051028
  Serious: Yes (Other)
  Sender: FDA-Public Use
  Company Number: FR-GLAXOSMITHKLINE-B0379834A

PATIENT
  Age: 28 Year
  Sex: Female

DRUGS (3)
  1. DEROXAT [Suspect]
     Indication: AFFECTIVE DISORDER
     Route: 048
     Dates: start: 20041201, end: 20050420
  2. DEPAKOTE [Suspect]
     Indication: AFFECTIVE DISORDER
     Dates: start: 20050301, end: 20050407
  3. SERESTA [Suspect]
     Indication: AFFECTIVE DISORDER
     Dates: start: 20041201, end: 20050420

REACTIONS (10)
  - ABDOMINAL PAIN [None]
  - ANXIETY [None]
  - BLOOD AMYLASE INCREASED [None]
  - CHILLS [None]
  - DIZZINESS [None]
  - FEELING ABNORMAL [None]
  - HYPERHIDROSIS [None]
  - LIPASE INCREASED [None]
  - NAUSEA [None]
  - VOMITING [None]
